FAERS Safety Report 5578434-1 (Version None)
Quarter: 2007Q4

REPORT INFORMATION
  Report Type: 
  Country: None (occurrence: None)
  Receive Date: 20071227
  Receipt Date: 20071212
  Transmission Date: 20080405
  Serious: Yes (Hospitalization)
  Sender: FDA-Public Use
  Company Number: 2007002278

PATIENT
  Age: 77 Year
  Sex: Male

DRUGS (1)
  1. ERLOTINIB (ERLOTINIB HC1( (TABLET) (ERLOTINIB HC1) [Suspect]
     Indication: PROSTATE CANCER
     Dosage: 150 MG, QD, ORAL
     Route: 048
     Dates: start: 20070807

REACTIONS (5)
  - DEHYDRATION [None]
  - HYPOXIA [None]
  - PNEUMOCYSTIS JIROVECI PNEUMONIA [None]
  - PULMONARY FIBROSIS [None]
  - PYREXIA [None]
